FAERS Safety Report 10681293 (Version 2)
Quarter: 2015Q1

REPORT INFORMATION
  Report Type: Spontaneous
  Country: SE (occurrence: SE)
  Receive Date: 20141230
  Receipt Date: 20150216
  Transmission Date: 20150720
  Serious: Yes (Other)
  Sender: FDA-Public Use
  Company Number: SE-BEH-2014047503

PATIENT
  Age: 3 Year
  Sex: Male
  Weight: 15.2 kg

DRUGS (2)
  1. PRIVIGEN [Suspect]
     Active Substance: HUMAN IMMUNOGLOBULIN G
     Dosage: 4.8 ML/KG/H; 0.4 G/KG
     Route: 042
     Dates: start: 20141213, end: 20141213
  2. PRIVIGEN [Suspect]
     Active Substance: HUMAN IMMUNOGLOBULIN G
     Indication: IMMUNE THROMBOCYTOPENIC PURPURA
     Dosage: 4.8 ML/KG/H; 0.4 G/KG
     Route: 042
     Dates: start: 20141214, end: 20141214

REACTIONS (8)
  - Headache [Recovered/Resolved]
  - Pain in extremity [Recovered/Resolved]
  - Hyperacusis [Recovered/Resolved]
  - Musculoskeletal stiffness [Recovered/Resolved]
  - Meningitis aseptic [Recovered/Resolved]
  - Vomiting [Recovered/Resolved]
  - Neck pain [Recovered/Resolved]
  - Pyrexia [Recovered/Resolved]

NARRATIVE: CASE EVENT DATE: 201412
